FAERS Safety Report 11427205 (Version 1)
Quarter: 2015Q3

REPORT INFORMATION
  Report Type: Spontaneous
  Country: US (occurrence: None)
  Receive Date: 20150827
  Receipt Date: 20150827
  Transmission Date: 20151125
  Serious: Yes (Death, Hospitalization)
  Sender: FDA-Public Use
  Company Number: None

PATIENT
  Age: 97 Year
  Sex: Female
  Weight: 50 kg

DRUGS (7)
  1. VIBRAMYCIN [Concomitant]
     Active Substance: DOXYCYCLINE
  2. BUMEX [Concomitant]
     Active Substance: BUMETANIDE
  3. RAMIPRIL. [Concomitant]
     Active Substance: RAMIPRIL
  4. WARFARIN 4 MG [Suspect]
     Active Substance: WARFARIN
     Indication: ATRIAL FIBRILLATION
     Dosage: CHRONIC?2 MG T, TH, S, 4 MG MWFS ONCE DAILY
     Route: 048
  5. TOPROL XL [Concomitant]
     Active Substance: METOPROLOL SUCCINATE
  6. KLOR-CON [Concomitant]
     Active Substance: POTASSIUM CHLORIDE
  7. TYLENOL [Concomitant]
     Active Substance: ACETAMINOPHEN

REACTIONS (6)
  - Ischaemic stroke [None]
  - Heart rate decreased [None]
  - Hypotension [None]
  - Intraventricular haemorrhage [None]
  - International normalised ratio abnormal [None]
  - Fall [None]

NARRATIVE: CASE EVENT DATE: 20150811
